FAERS Safety Report 7860762-8 (Version None)
Quarter: 2011Q4

REPORT INFORMATION
  Report Type: 
  Country: None (occurrence: None)
  Receive Date: 20111027
  Receipt Date: 20111014
  Transmission Date: 20120403
  Serious: Yes (Other)
  Sender: FDA-Public Use
  Company Number: CA-JNJFOC-20111007912

PATIENT
  Sex: Male
  Weight: 90.9 kg

DRUGS (3)
  1. REMICADE [Suspect]
     Indication: ANKYLOSING SPONDYLITIS
     Route: 042
  2. ALPHAGAN P [Concomitant]
     Route: 065
  3. REMICADE [Suspect]
     Route: 042
     Dates: start: 20110318

REACTIONS (1)
  - RECTAL HAEMORRHAGE [None]
